FAERS Safety Report 8275723-7 (Version None)
Quarter: 2012Q2

REPORT INFORMATION
  Report Type: 
  Country: None (occurrence: None)
  Receive Date: 20120410
  Receipt Date: 20120410
  Transmission Date: 20120825
  Serious: Yes (Other)
  Sender: FDA-Public Use
  Company Number: None

PATIENT
  Age: 56 Year
  Sex: Male
  Weight: 72.7 kg

DRUGS (4)
  1. CLINDAMYCIN HCL [Suspect]
     Indication: CELLULITIS
     Dosage: 300MG ONE 4X DAY ORAL
     Route: 048
     Dates: start: 20111101, end: 20111106
  2. TRAZODONE HCL [Concomitant]
  3. LEVOTHYROXINE SODIUM [Concomitant]
  4. PRISTIQ [Concomitant]

REACTIONS (4)
  - DYSGEUSIA [None]
  - GLOSSODYNIA [None]
  - DRY MOUTH [None]
  - AGEUSIA [None]
